FAERS Safety Report 8853765 (Version 1)
Quarter: 2012Q4

REPORT INFORMATION
  Report Type: 
  Country: IN (occurrence: SG)
  Receive Date: 20121023
  Receipt Date: 20121023
  Transmission Date: 20130627
  Serious: Yes (Other)
  Sender: FDA-Public Use
  Company Number: SG-009507513-1003USA03498

PATIENT

DRUGS (5)
  1. DEXAMETHASONE [Suspect]
     Indication: MULTIPLE MYELOMA
     Dosage: 20 mg, QW
     Route: 048
  2. DEXAMETHASONE [Suspect]
     Dosage: 20 mg, UNK
     Route: 048
  3. THALIDOMIDE [Suspect]
     Indication: MULTIPLE MYELOMA
     Dosage: 50 mg, QW
  4. THALIDOMIDE [Suspect]
     Dosage: 100 mg, UNK
  5. ZOLEDRONIC ACID [Suspect]
     Indication: MULTIPLE MYELOMA
     Dosage: 4 mg, TIW

REACTIONS (3)
  - Sepsis [Unknown]
  - Gastrointestinal infection [Unknown]
  - Urinary tract infection [Unknown]
